FAERS Safety Report 17385281 (Version 1)
Quarter: 2020Q1

REPORT INFORMATION
  Report Type: Spontaneous
  Country: US (occurrence: US)
  Receive Date: 20200206
  Receipt Date: 20200206
  Transmission Date: 20200409
  Serious: No
  Sender: FDA-Public Use
  Company Number: US-ABBVIE-19K-163-3199895-00

PATIENT
  Age: 43 Year
  Sex: Female
  Weight: 113.05 kg

DRUGS (4)
  1. NORGESTIMATE [Concomitant]
     Active Substance: NORGESTIMATE
     Indication: CONTRACEPTION
  2. METHOTREXATE. [Concomitant]
     Active Substance: METHOTREXATE
     Indication: HIDRADENITIS
  3. NEXIUM [Concomitant]
     Active Substance: ESOMEPRAZOLE MAGNESIUM
     Indication: GASTROOESOPHAGEAL REFLUX DISEASE
  4. HUMIRA [Suspect]
     Active Substance: ADALIMUMAB
     Indication: HIDRADENITIS
     Route: 058
     Dates: start: 201905

REACTIONS (3)
  - Injection site haemorrhage [Recovered/Resolved]
  - Device issue [Unknown]
  - Incorrect dose administered [Unknown]

NARRATIVE: CASE EVENT DATE: 20191206
